FAERS Safety Report 23538209 (Version 1)
Quarter: 2024Q1

REPORT INFORMATION
  Report Type: Spontaneous
  Country: GB (occurrence: GB)
  Receive Date: 20240219
  Receipt Date: 20240219
  Transmission Date: 20240409
  Serious: Yes (Death)
  Sender: FDA-Public Use
  Company Number: GB-SANOFI-AVENTIS-2010SA0 56662

PATIENT
  Age: 75 Year
  Sex: Female

DRUGS (2)
  1. LISINOPRIL [Suspect]
     Active Substance: LISINOPRIL
     Route: 065
  2. LEFLUNOMIDE [Suspect]
     Active Substance: LEFLUNOMIDE
     Route: 065

REACTIONS (7)
  - Acute hepatic failure [Fatal]
  - Coronary artery disease [Fatal]
  - Duodenal ulcer [Fatal]
  - Gastrointestinal haemorrhage [Fatal]
  - Haematemesis [Fatal]
  - Labile blood pressure [Fatal]
  - Renal failure [Fatal]

NARRATIVE: CASE EVENT DATE: 20020101
